FAERS Safety Report 15829713 (Version 1)
Quarter: 2019Q1

REPORT INFORMATION
  Report Type: Spontaneous
  Country: US (occurrence: US)
  Receive Date: 20190115
  Receipt Date: 20190115
  Transmission Date: 20190417
  Serious: No
  Sender: FDA-Public Use
  Company Number: US-ALLERGAN-1851586US

PATIENT
  Age: 85 Year
  Sex: Female

DRUGS (8)
  1. CLORAZEPATE [Concomitant]
     Active Substance: CLORAZEPATE DIPOTASSIUM
     Indication: ANXIETY
     Dosage: 7.5 MG, UNK
  2. SYSTANE (HYPROMELLOSE 2910 (4000 MPA.S)) [Concomitant]
     Active Substance: HYPROMELLOSE 2910 (4000 MPA.S)
     Dosage: IN BETWEEN THE RESTASIS
  3. HYDROCHLOORTHIAZIDE [Concomitant]
     Active Substance: HYDROCHLOROTHIAZIDE
     Indication: BLOOD PRESSURE MEASUREMENT
     Dosage: 25 MG, UNK
  4. GABAPENTIN. [Concomitant]
     Active Substance: GABAPENTIN
     Indication: NERVE DEGENERATION
     Dosage: 600 MG, UNK
  5. THYROID MEDICATION [Concomitant]
     Active Substance: UNSPECIFIED INGREDIENT
     Indication: THYROID DISORDER
  6. SHOTS [Concomitant]
     Indication: PRODUCT USED FOR UNKNOWN INDICATION
  7. HERBAL [Concomitant]
     Active Substance: HERBALS
     Indication: SUPPLEMENTATION THERAPY
  8. RESTASIS [Suspect]
     Active Substance: CYCLOSPORINE
     Indication: MACULAR DEGENERATION
     Dosage: 2 GTT, BID (MORNING AND EVENING)
     Route: 047
     Dates: start: 201808

REACTIONS (4)
  - Product container issue [Unknown]
  - Product packaging quantity issue [Unknown]
  - Off label use [Unknown]
  - Product dose omission [Unknown]

NARRATIVE: CASE EVENT DATE: 201808
